FAERS Safety Report 11544064 (Version 1)
Quarter: 2015Q3

REPORT INFORMATION
  Report Type: Spontaneous
  Country: US (occurrence: US)
  Receive Date: 20150924
  Receipt Date: 20150924
  Transmission Date: 20151125
  Serious: Yes (Hospitalization, Other)
  Sender: FDA-Public Use
  Company Number: US-PFIZER INC-2015304179

PATIENT
  Age: 61 Year
  Sex: Female
  Weight: 118.82 kg

DRUGS (13)
  1. LYRICA [Suspect]
     Active Substance: PREGABALIN
     Indication: NERVE INJURY
     Dosage: 50 MG, 3X/DAY
     Route: 048
     Dates: start: 2013, end: 2015
  2. ALLOPURINOL. [Concomitant]
     Active Substance: ALLOPURINOL
     Indication: GOUT
     Dosage: UNK
  3. TRAMADOL. [Concomitant]
     Active Substance: TRAMADOL
     Indication: PAIN
     Dosage: UNK
  4. NORCO [Concomitant]
     Active Substance: ACETAMINOPHEN\HYDROCODONE BITARTRATE
     Indication: INSOMNIA
     Dosage: UNK
  5. NORCO [Concomitant]
     Active Substance: ACETAMINOPHEN\HYDROCODONE BITARTRATE
     Indication: PAIN
  6. TIZANIDINE HYDROCHLORIDE. [Concomitant]
     Active Substance: TIZANIDINE HYDROCHLORIDE
     Indication: MUSCLE SPASMS
     Dosage: 2 MG, UNK
  7. PRILOSEC [Concomitant]
     Active Substance: OMEPRAZOLE MAGNESIUM
     Indication: DYSPEPSIA
     Dosage: UNK
  8. ATORVASTATIN [Concomitant]
     Active Substance: ATORVASTATIN
     Indication: BLOOD CHOLESTEROL INCREASED
     Dosage: UNK
  9. LYRICA [Suspect]
     Active Substance: PREGABALIN
     Dosage: 50 MG, 3X/DAY
     Route: 048
     Dates: start: 2015
  10. MOBIC [Concomitant]
     Active Substance: MELOXICAM
     Indication: ARTHRITIS
     Dosage: UNK
  11. THEOPHYLLINE [Suspect]
     Active Substance: THEOPHYLLINE ANHYDROUS
     Indication: ASTHMA
     Dosage: 300MG ER TABLETS EVERY 12 HOURS
     Route: 048
     Dates: end: 2015
  12. THEOPHYLLINE [Suspect]
     Active Substance: THEOPHYLLINE ANHYDROUS
     Dosage: 300MG ER TABLETS EVERY 12 HOURS
     Route: 048
     Dates: start: 2015
  13. DIOVAN [Concomitant]
     Active Substance: VALSARTAN
     Dosage: UNK

REACTIONS (19)
  - Toxicity to various agents [Recovered/Resolved]
  - Pyrexia [Unknown]
  - Fibrin D dimer increased [Unknown]
  - White blood cell count increased [Unknown]
  - Viral infection [Recovered/Resolved]
  - Feeling abnormal [Unknown]
  - Blood magnesium decreased [Unknown]
  - Swelling face [Unknown]
  - Blood potassium decreased [Unknown]
  - Dehydration [Recovered/Resolved]
  - Fluid retention [Not Recovered/Not Resolved]
  - Electrocardiogram Q wave abnormal [Unknown]
  - Chills [Unknown]
  - Atrial fibrillation [Unknown]
  - Heart rate increased [Recovered/Resolved]
  - Sinus disorder [Unknown]
  - Blood phosphorus decreased [Unknown]
  - Malaise [Unknown]
  - Blood pressure abnormal [Recovered/Resolved]

NARRATIVE: CASE EVENT DATE: 20150604
